FAERS Safety Report 19421772 (Version 1)
Quarter: 2021Q2

REPORT INFORMATION
  Report Type: Spontaneous
  Country: US (occurrence: US)
  Receive Date: 20210615
  Receipt Date: 20210615
  Transmission Date: 20210717
  Serious: No
  Sender: FDA-Public Use
  Company Number: US-SA-2021SA195872

PATIENT
  Age: 16 Year
  Sex: Male

DRUGS (1)
  1. DUPIXENT [Suspect]
     Active Substance: DUPILUMAB
     Indication: DERMATITIS ATOPIC
     Dosage: 300 MG
     Route: 058
     Dates: start: 202012

REACTIONS (7)
  - Ocular hyperaemia [Unknown]
  - Burning sensation [Unknown]
  - Dermatitis atopic [Unknown]
  - Skin fissures [Unknown]
  - Product dose omission issue [Unknown]
  - Dry skin [Unknown]
  - Product use issue [Unknown]

NARRATIVE: CASE EVENT DATE: 202012
